FAERS Safety Report 10157286 (Version 2)
Quarter: 2014Q3

REPORT INFORMATION
  Report Type: Spontaneous
  Country: US (occurrence: US)
  Receive Date: 20140507
  Receipt Date: 20140709
  Transmission Date: 20150326
  Serious: No
  Sender: FDA-Public Use
  Company Number: US-009507513-1405USA000184

PATIENT
  Sex: Female
  Weight: 85.71 kg

DRUGS (2)
  1. OXYTROL FOR WOMEN [Suspect]
     Active Substance: OXYBUTYNIN
     Indication: PRODUCT USED FOR UNKNOWN INDICATION
     Dosage: UNK, UNKNOWN
     Route: 062
     Dates: start: 20140103, end: 20140119
  2. BOTOX [Concomitant]
     Active Substance: ONABOTULINUMTOXINA
     Indication: BLADDER SPASM
     Dosage: UNK, UNKNOWN

REACTIONS (2)
  - Bladder spasm [Unknown]
  - Drug ineffective [Unknown]

NARRATIVE: CASE EVENT DATE: 2014
